FAERS Safety Report 8477511-5 (Version None)
Quarter: 2012Q2

REPORT INFORMATION
  Report Type: 
  Country: None (occurrence: None)
  Receive Date: 20120629
  Receipt Date: 20120621
  Transmission Date: 20120825
  Serious: Yes (Life-Threatening)
  Sender: FDA-Public Use
  Company Number: PHHO2010IT15605

PATIENT
  Sex: Male
  Weight: 47 kg

DRUGS (7)
  1. RAMIPRIL [Concomitant]
     Dosage: UNK
  2. BISOPROLOL FUMARATE [Concomitant]
     Dosage: UNK
  3. ATORVASTATIN [Concomitant]
     Dosage: UNK
  4. ASPIRIN [Concomitant]
     Dosage: UNK
  5. CLOPIDOGREL [Concomitant]
     Dosage: UNK
  6. TASIGNA [Suspect]
     Indication: GASTROINTESTINAL STROMAL TUMOUR
     Dosage: 400 MG
     Route: 048
     Dates: start: 20100413, end: 20101009
  7. METFORMIN HCL [Concomitant]
     Dosage: UNK

REACTIONS (4)
  - ACUTE CORONARY SYNDROME [None]
  - ANGINA UNSTABLE [None]
  - CORONARY ARTERY STENOSIS [None]
  - CHEST PAIN [None]
